FAERS Safety Report 18745971 (Version 1)
Quarter: 2021Q1

REPORT INFORMATION
  Report Type: Spontaneous
  Country: US (occurrence: US)
  Receive Date: 20210114
  Receipt Date: 20210114
  Transmission Date: 20210419
  Serious: Yes (Hospitalization)
  Sender: FDA-Public Use
  Company Number: None

PATIENT
  Age: 54 Year
  Sex: Male
  Weight: 138 kg

DRUGS (4)
  1. BAMLANIVIMAB. [Suspect]
     Active Substance: BAMLANIVIMAB
     Indication: COVID-19
     Route: 042
  2. BETAMETHASONE DIPROPIONATE 0.05% [Concomitant]
     Dates: start: 20200919
  3. HYDROCORTISONE VALIDATE 0.2% [Concomitant]
     Dates: start: 20190424
  4. METFORMIN 500MG [Concomitant]
     Active Substance: METFORMIN HYDROCHLORIDE
     Dates: start: 20200919

REACTIONS (6)
  - Wheezing [None]
  - Infusion related reaction [None]
  - Dyspnoea [None]
  - Tachycardia [None]
  - Pneumonia [None]
  - Oxygen saturation decreased [None]

NARRATIVE: CASE EVENT DATE: 20210108
